FAERS Safety Report 4900885-6 (Version None)
Quarter: 2006Q1

REPORT INFORMATION
  Report Type: 
  Country: None (occurrence: None)
  Receive Date: 20060113
  Receipt Date: 20050907
  Transmission Date: 20060701
  Serious: No
  Sender: FDA-Public Use
  Company Number: 2005SP002682

PATIENT
  Age: 74 Year
  Sex: Female
  Weight: 49.8957 kg

DRUGS (1)
  1. LUNESTA [Suspect]
     Dosage: 0.5 MG;HS;ORAL
     Route: 048
     Dates: start: 20050401, end: 20050904

REACTIONS (5)
  - DRUG EFFECT DECREASED [None]
  - DYSGEUSIA [None]
  - EAR DISCOMFORT [None]
  - PARAESTHESIA [None]
  - TINNITUS [None]
